FAERS Safety Report 8100700-6 (Version None)
Quarter: 2012Q1

REPORT INFORMATION
  Report Type: 
  Country: None (occurrence: None)
  Receive Date: 20120129
  Receipt Date: 20111227
  Transmission Date: 20120608
  Serious: No
  Sender: FDA-Public Use
  Company Number: US-ABBOTT-11P-163-0710880-00

PATIENT
  Sex: Male

DRUGS (1)
  1. HUMIRA [Suspect]
     Indication: RHEUMATOID ARTHRITIS
     Route: 058
     Dates: start: 20100801

REACTIONS (6)
  - RASH [None]
  - WEIGHT INCREASED [None]
  - BLOOD PRESSURE INCREASED [None]
  - ARTHRALGIA [None]
  - TINEA INFECTION [None]
  - SKIN DISCOLOURATION [None]
